FAERS Safety Report 22148033 (Version 1)
Quarter: 2023Q1

REPORT INFORMATION
  Report Type: Report from Study
  Country: DE (occurrence: DE)
  Receive Date: 20230328
  Receipt Date: 20230328
  Transmission Date: 20230417
  Serious: Yes (Other)
  Sender: FDA-Public Use
  Company Number: DE-009507513-1908DEU004706

PATIENT
  Age: 69 Year
  Sex: Male
  Weight: 78 kg

DRUGS (5)
  1. PEMETREXED [Suspect]
     Active Substance: PEMETREXED
     Indication: Non-small cell lung cancer
     Dosage: UNK, INTRAVENOUS INFUSION
     Route: 042
  2. PEMETREXED [Suspect]
     Active Substance: PEMETREXED
     Dosage: STARTING DOSE AT 980 MILLIGRAM, FLUCTUATED DOSES
     Route: 042
     Dates: start: 20190327, end: 20190619
  3. PEMBROLIZUMAB [Suspect]
     Active Substance: PEMBROLIZUMAB
     Indication: Non-small cell lung cancer
     Dosage: 200 MILLIGRAM
     Route: 065
     Dates: start: 20190327, end: 20190619
  4. CARBOPLATIN [Suspect]
     Active Substance: CARBOPLATIN
     Indication: Non-small cell lung cancer
     Dosage: STARTING DOSE AT 547 MILLIGRAM
     Route: 065
     Dates: start: 20190327, end: 20190529
  5. CARBOPLATIN [Suspect]
     Active Substance: CARBOPLATIN
     Dosage: UNK
     Route: 065

REACTIONS (1)
  - Tubulointerstitial nephritis [Not Recovered/Not Resolved]

NARRATIVE: CASE EVENT DATE: 20190717
